FAERS Safety Report 9821313 (Version 1)
Quarter: 2013Q4

REPORT INFORMATION
  Report Type: Spontaneous
  Country: US (occurrence: None)
  Receive Date: 20131028
  Receipt Date: 20131028
  Transmission Date: 20140711
  Serious: Yes (Other)
  Sender: FDA-Public Use
  Company Number: 2013US001107

PATIENT
  Age: 23 Year
  Sex: Female
  Weight: 58 kg

DRUGS (4)
  1. ICLUSIG [Suspect]
     Indication: CHRONIC MYELOID LEUKAEMIA
     Route: 048
     Dates: start: 20130115
  2. ZOLOFT (SERTRALINE HYDROCHLORIDE) [Concomitant]
  3. MULTIVITAMIN (VITAMINS NOS) [Concomitant]
  4. MELATONIN (MELATONIN) [Concomitant]

REACTIONS (5)
  - Dry skin [None]
  - Rash [None]
  - Arthralgia [None]
  - Myalgia [None]
  - Headache [None]
